FAERS Safety Report 8811809 (Version 1)
Quarter: 2012Q4

REPORT INFORMATION
  Report Type: 
  Country: US (occurrence: US)
  Receive Date: 20120927
  Receipt Date: 20120927
  Transmission Date: 20130627
  Serious: Yes (Hospitalization)
  Sender: FDA-Public Use
  Company Number: US-GLAXOSMITHKLINE-A0894629A

PATIENT
  Age: 53 Year
  Sex: Female
  Weight: 93.2 kg

DRUGS (9)
  1. MELPHALAN [Suspect]
     Indication: MULTIPLE MYELOMA
     Dosage: 395MG Single dose
     Route: 042
     Dates: start: 20101018, end: 20101018
  2. AMLODIPINE [Concomitant]
     Indication: HYPERTENSION
     Dosage: 5MG Per day
     Route: 048
  3. K-DUR [Concomitant]
     Indication: HYPOKALAEMIA
     Dosage: 10MEQ Per day
     Route: 048
  4. VYTORIN [Concomitant]
     Indication: HYPERLIPIDAEMIA
     Dosage: 1TAB Per day
     Route: 048
  5. LASIX [Concomitant]
     Indication: HYPERTENSION
     Dosage: 40MG Per day
     Route: 048
  6. BENAZEPRIL [Concomitant]
     Indication: HYPERTENSION
     Dosage: 20MG Per day
     Route: 048
  7. WELLBUTRIN XL [Concomitant]
     Indication: DEPRESSION
     Dosage: 300MG Per day
     Route: 048
  8. SOMA [Concomitant]
     Indication: BACK PAIN
     Dosage: 350MG Four times per day
     Route: 048
  9. XANAX [Concomitant]
     Indication: ANXIETY
     Dosage: 1MG Twice per day
     Route: 048

REACTIONS (3)
  - Febrile neutropenia [Recovered/Resolved]
  - Mucosal inflammation [Unknown]
  - Neutrophil count decreased [Unknown]
